FAERS Safety Report 8064228-4 (Version None)
Quarter: 2012Q1

REPORT INFORMATION
  Report Type: 
  Country: None (occurrence: None)
  Receive Date: 20120123
  Receipt Date: 20120117
  Transmission Date: 20120608
  Serious: No
  Sender: FDA-Public Use
  Company Number: US-PFIZER INC-2012014029

PATIENT
  Sex: Female
  Weight: 61.2 kg

DRUGS (12)
  1. LYRICA [Suspect]
     Indication: PRURITUS
  2. TRAMADOL [Concomitant]
     Indication: SYSTEMIC LUPUS ERYTHEMATOSUS
     Dosage: 10 MG, DAILY
  3. WARFARIN SODIUM [Concomitant]
     Indication: ANTIPHOSPHOLIPID SYNDROME
     Dosage: 7.5 MG, DAILY
  4. VERAPAMIL [Concomitant]
     Indication: SYSTEMIC LUPUS ERYTHEMATOSUS
     Dosage: 200 MG, 2X/DAY
  5. ACTONEL [Concomitant]
     Indication: OSTEOPOROSIS
     Dosage: 35 MG, WEEKLY
  6. MESTINON [Concomitant]
     Indication: MYASTHENIA GRAVIS
     Dosage: 60 MG IN MORNING, 60 MG IN AFTERNOON AND 180 MG AT NIGHT
  7. LYRICA [Suspect]
     Indication: HERPES ZOSTER
     Dosage: 150 MG, 2X/DAY
     Route: 048
  8. CYMBALTA [Concomitant]
     Indication: ANXIETY
     Dosage: 90 MG, DAILY
  9. LYRICA [Suspect]
     Indication: PAIN
  10. LEVOXYL [Concomitant]
     Indication: THYROID DISORDER
     Dosage: 50 MG, DAILY
  11. CYMBALTA [Concomitant]
     Indication: DEPRESSION
  12. MYCOPHENOLATE MOFETIL (CELLCEPT) [Concomitant]
     Indication: SYSTEMIC LUPUS ERYTHEMATOSUS
     Dosage: 500 MG, 2X/DAY

REACTIONS (1)
  - PANIC REACTION [None]
